FAERS Safety Report 7235386-6 (Version None)
Quarter: 2011Q1

REPORT INFORMATION
  Report Type: 
  Country: None (occurrence: None)
  Receive Date: 20110120
  Receipt Date: 20110114
  Transmission Date: 20110831
  Serious: Yes (Hospitalization, Other)
  Sender: FDA-Public Use
  Company Number: US-AMGEN INC.-QUU444604

PATIENT

DRUGS (9)
  1. EPOGEN [Suspect]
     Indication: RENAL FAILURE CHRONIC
     Dosage: UNK UNK, QWK
     Route: 058
     Dates: start: 20081216, end: 20100908
  2. EPOGEN [Suspect]
     Dates: start: 20080101, end: 20100915
  3. DIALYVITE 3000 [Concomitant]
     Dosage: UNK
     Dates: start: 20081117
  4. EPOGEN [Suspect]
     Dates: start: 20080101, end: 20100915
  5. AMLODIPINE [Concomitant]
     Dosage: UNK
     Dates: start: 20100319
  6. CALCIUM ACETATE [Concomitant]
     Dosage: UNK
     Dates: start: 20091102
  7. OMEPRAZOLE [Concomitant]
     Dosage: UNK
     Dates: start: 20100719
  8. CALCIUM CARBONATE [Concomitant]
     Dosage: UNK
     Dates: start: 20081203
  9. LISINOPRIL [Concomitant]
     Dosage: UNK
     Dates: start: 20091228

REACTIONS (4)
  - ANAEMIA [None]
  - THERAPEUTIC RESPONSE DECREASED [None]
  - APLASIA PURE RED CELL [None]
  - ANTI-ERYTHROPOIETIN ANTIBODY POSITIVE [None]
